FAERS Safety Report 15594633 (Version 3)
Quarter: 2018Q4

REPORT INFORMATION
  Report Type: Report from Study
  Country: US (occurrence: US)
  Receive Date: 20181107
  Receipt Date: 20181130
  Transmission Date: 20190205
  Serious: Yes (Hospitalization)
  Sender: FDA-Public Use
  Company Number: US-TAKEDA-2018TUS031936

PATIENT
  Sex: Female
  Weight: 92.97 kg

DRUGS (2)
  1. VEDOLIZUMAB [Suspect]
     Active Substance: VEDOLIZUMAB
     Indication: CROHN^S DISEASE
     Dosage: 300 MG, UNK
     Route: 042
     Dates: start: 20170727, end: 20181031
  2. PREDNISONE. [Suspect]
     Active Substance: PREDNISONE
     Indication: CROHN^S DISEASE
     Dosage: 60 MG, QD
     Route: 065

REACTIONS (4)
  - Therapeutic reaction time decreased [Unknown]
  - Cushingoid [Unknown]
  - Crohn^s disease [Unknown]
  - Weight increased [Unknown]
